FAERS Safety Report 6538917-4 (Version None)
Quarter: 2010Q1

REPORT INFORMATION
  Report Type: 
  Country: None (occurrence: None)
  Receive Date: 20100115
  Receipt Date: 20100111
  Transmission Date: 20100710
  Serious: Yes (Death)
  Sender: FDA-Public Use
  Company Number: US-ROCHE-679229

PATIENT
  Sex: Female

DRUGS (1)
  1. CAPECITABINE [Suspect]
     Indication: DRUG USE FOR UNKNOWN INDICATION
     Dosage: DOSING REGIMEN: TWO 150 MG TABLETS TWICE A DAY AND THREE 500 MG TABLETS TWICE A DAY; 7 DAYS ON/OFF
     Route: 048
     Dates: start: 20090928

REACTIONS (1)
  - DEATH [None]
